FAERS Safety Report 10114176 (Version 2)
Quarter: 2015Q1

REPORT INFORMATION
  Report Type: Other
  Country: US (occurrence: US)
  Receive Date: 20140425
  Receipt Date: 20150209
  Transmission Date: 20150720
  Serious: Yes (Hospitalization)
  Sender: FDA-Public Use
  Company Number: US-GSKPPD-2014GSK013565

PATIENT
  Age: 62 Year
  Sex: Male

DRUGS (9)
  1. ATENOLOL. [Concomitant]
     Active Substance: ATENOLOL
     Dates: end: 200711
  2. MAGNESIUM [Concomitant]
     Active Substance: MAGNESIUM
     Dates: end: 200711
  3. LISINOPRIL. [Concomitant]
     Active Substance: LISINOPRIL
  4. LOSARTAN [Concomitant]
     Active Substance: LOSARTAN
     Dates: end: 200711
  5. HUMALOG [Concomitant]
     Active Substance: INSULIN LISPRO
  6. AMLODIPINE [Concomitant]
     Active Substance: AMLODIPINE BESYLATE
  7. AVANDIA [Suspect]
     Active Substance: ROSIGLITAZONE MALEATE
     Indication: DIABETES MELLITUS
     Route: 048
     Dates: end: 200711
  8. METFORMIN [Concomitant]
     Active Substance: METFORMIN HYDROCHLORIDE
  9. LIPITOR [Concomitant]
     Active Substance: ATORVASTATIN CALCIUM

REACTIONS (1)
  - Coronary artery disease [Recovered/Resolved]

NARRATIVE: CASE EVENT DATE: 20071107
